FAERS Safety Report 10072522 (Version 3)
Quarter: 2014Q3

REPORT INFORMATION
  Report Type: Spontaneous
  Country: US (occurrence: US)
  Receive Date: 20140411
  Receipt Date: 20140815
  Transmission Date: 20150326
  Serious: Yes (Death, Life-Threatening, Hospitalization, Other)
  Sender: FDA-Public Use
  Company Number: US-009507513-1404USA005926

PATIENT
  Sex: Female
  Weight: 102.4 kg

DRUGS (2)
  1. JANUVIA [Suspect]
     Active Substance: SITAGLIPTIN PHOSPHATE
     Indication: TYPE 2 DIABETES MELLITUS
     Dosage: 100 MG, QD
     Route: 048
     Dates: start: 20110421, end: 20120329
  2. JANUVIA [Suspect]
     Active Substance: SITAGLIPTIN PHOSPHATE
     Dosage: 50 MG, QD
     Route: 048
     Dates: start: 20120511, end: 20120715

REACTIONS (18)
  - Type 1 diabetes mellitus [Unknown]
  - Anxiety [Unknown]
  - Dysgeusia [Unknown]
  - Drug intolerance [Unknown]
  - Bile duct stent insertion [Unknown]
  - Atelectasis [Unknown]
  - Erythema [Unknown]
  - Pancreatic carcinoma [Fatal]
  - Weight increased [Unknown]
  - Abdominal pain [Unknown]
  - Chronic obstructive pulmonary disease [Not Recovered/Not Resolved]
  - Dyspepsia [Not Recovered/Not Resolved]
  - Toe operation [Unknown]
  - Tonsillectomy [Unknown]
  - Liver function test abnormal [Unknown]
  - Hysterectomy [Unknown]
  - Uterine dilation and curettage [Unknown]
  - Transaminases increased [Unknown]

NARRATIVE: CASE EVENT DATE: 201203
